FAERS Safety Report 24751163 (Version 2)
Quarter: 2025Q3

REPORT INFORMATION
  Report Type: Spontaneous
  Country: CA (occurrence: CA)
  Receive Date: 20241219
  Receipt Date: 20250709
  Transmission Date: 20251021
  Serious: Yes (Other)
  Sender: NOVO NORDISK
  Company Number: None

PATIENT
  Age: 13 Year
  Sex: Female

DRUGS (3)
  1. NORDITROPIN [Suspect]
     Active Substance: SOMATROPIN
     Indication: Turner^s syndrome
     Route: 058
  2. VITAMIN C [Concomitant]
     Active Substance: ASCORBIC ACID
     Dosage: 250 MG, QD
     Route: 048
  3. CHOLECALCIFEROL [Concomitant]
     Active Substance: CHOLECALCIFEROL
     Dosage: 1 DF, QD
     Route: 048

REACTIONS (5)
  - Blood iron decreased [Recovered/Resolved]
  - Heavy menstrual bleeding [Recovered/Resolved]
  - Long QT syndrome [Recovered/Resolved]
  - Syncope [Recovered/Resolved]
  - Drug ineffective [Recovered/Resolved]
